FAERS Safety Report 22029016 (Version 2)
Quarter: 2023Q1

REPORT INFORMATION
  Report Type: Spontaneous
  Country: CH (occurrence: CH)
  Receive Date: 20230223
  Receipt Date: 20230309
  Transmission Date: 20230418
  Serious: Yes (Other)
  Sender: FDA-Public Use
  Company Number: CH-TEVA-2023-CH-2858528

PATIENT
  Age: 42 Year
  Sex: Female

DRUGS (3)
  1. METHOTREXATE [Suspect]
     Active Substance: METHOTREXATE
     Indication: Hypergammaglobulinaemia benign monoclonal
     Route: 065
  2. IBUPROFEN [Suspect]
     Active Substance: IBUPROFEN
     Indication: Hypergammaglobulinaemia benign monoclonal
     Route: 065
  3. ADALIMUMAB [Suspect]
     Active Substance: ADALIMUMAB
     Indication: Hypergammaglobulinaemia benign monoclonal
     Route: 065

REACTIONS (2)
  - Renal failure [Recovered/Resolved]
  - Drug ineffective [Unknown]
